FAERS Safety Report 18245543 (Version 1)
Quarter: 2020Q3

REPORT INFORMATION
  Report Type: Spontaneous
  Country: US (occurrence: US)
  Receive Date: 20200908
  Receipt Date: 20200908
  Transmission Date: 20201103
  Serious: Yes (Other)
  Sender: FDA-Public Use
  Company Number: None

PATIENT
  Age: 61 Year
  Sex: Male
  Weight: 74.9 kg

DRUGS (6)
  1. LEUCOVON^N [Concomitant]
     Dates: start: 20070617
  2. TAMSULOSIN [Concomitant]
     Active Substance: TAMSULOSIN
     Dates: start: 20190214
  3. ALPRAZOLAM. [Concomitant]
     Active Substance: ALPRAZOLAM
     Dates: start: 20200902
  4. SULINDAC. [Concomitant]
     Active Substance: SULINDAC
     Dates: start: 20071031
  5. HUMIRA [Suspect]
     Active Substance: ADALIMUMAB
     Indication: PALINDROMIC RHEUMATISM
     Dosage: FREQUENCY:  EVERY 14 DAYS
     Route: 058
  6. METHOTREXATE. [Suspect]
     Active Substance: METHOTREXATE
     Indication: PALINDROMIC RHEUMATISM
     Route: 048

REACTIONS (1)
  - Prostate cancer [None]

NARRATIVE: CASE EVENT DATE: 20200908
